FAERS Safety Report 6699211-4 (Version None)
Quarter: 2010Q2

REPORT INFORMATION
  Report Type: 
  Country: None (occurrence: None)
  Receive Date: 20100427
  Receipt Date: 20100421
  Transmission Date: 20101027
  Serious: Yes (Other)
  Sender: FDA-Public Use
  Company Number: PT-GILEAD-2010-0028463

PATIENT
  Sex: Female

DRUGS (2)
  1. VIREAD [Suspect]
     Indication: HIV INFECTION
  2. LOPINAVIR [Concomitant]

REACTIONS (1)
  - FRACTURE [None]
